FAERS Safety Report 21995935 (Version 1)
Quarter: 2023Q1

REPORT INFORMATION
  Report Type: Spontaneous
  Country: US (occurrence: None)
  Receive Date: 20230214
  Receipt Date: 20230214
  Transmission Date: 20230417
  Serious: Yes (Hospitalization)
  Sender: FDA-Public Use
  Company Number: None

PATIENT
  Age: 65 Year
  Sex: Female

DRUGS (2)
  1. AMBRISENTAN [Suspect]
     Active Substance: AMBRISENTAN
  2. SILDENAFIL [Concomitant]
     Active Substance: SILDENAFIL
     Dosage: FREQUENCY : DAILY;?
     Route: 048
     Dates: start: 20140827

REACTIONS (8)
  - Pancreatitis acute [None]
  - Portal vein thrombosis [None]
  - Peripheral swelling [None]
  - Syncope [None]
  - Fall [None]
  - Left ventricular failure [None]
  - Cardiac failure [None]
  - Hepatic encephalopathy [None]

NARRATIVE: CASE EVENT DATE: 20221204
